FAERS Safety Report 5397466-X (Version None)
Quarter: 2007Q3

REPORT INFORMATION
  Report Type: 
  Country: None (occurrence: None)
  Receive Date: 20070723
  Receipt Date: 20070723
  Transmission Date: 20080115
  Serious: Yes (Disabling)
  Sender: FDA-Public Use
  Company Number: None

PATIENT
  Age: 63 Year
  Sex: Male
  Weight: 98.4306 kg

DRUGS (2)
  1. BEXTRA [Suspect]
     Indication: PAIN IN EXTREMITY
     Dosage: 20MG 1 PER DAY
     Dates: start: 20040430, end: 20050422
  2. BEXTRA [Suspect]
     Indication: POST POLIO SYNDROME
     Dosage: 20MG 1 PER DAY
     Dates: start: 20040430, end: 20050422

REACTIONS (4)
  - MALIGNANT MELANOMA [None]
  - SKIN DISORDER [None]
  - SKIN LESION [None]
  - VISUAL DISTURBANCE [None]
